FAERS Safety Report 13268088 (Version 1)
Quarter: 2017Q1

REPORT INFORMATION
  Report Type: Report from Study
  Country: US (occurrence: US)
  Receive Date: 20170224
  Receipt Date: 20170224
  Transmission Date: 20170428
  Serious: Yes (Hospitalization)
  Sender: FDA-Public Use
  Company Number: PHHO2017US003427

PATIENT
  Sex: Male
  Weight: 93.6 kg

DRUGS (4)
  1. COMPARATOR PACLITAXEL [Suspect]
     Active Substance: PACLITAXEL
     Indication: ANAPLASTIC THYROID CANCER
     Dosage: 559 MG (TOTAL DOSE ADMINISTERED)
     Route: 042
     Dates: start: 20161024, end: 20161114
  2. BLINDED NO TREATMENT RECEIVED [Suspect]
     Active Substance: INVESTIGATIONAL PRODUCT
     Indication: ANAPLASTIC THYROID CANCER
     Dosage: CODE NOT BROKEN
     Route: 048
     Dates: start: 20161025, end: 20161121
  3. BLINDED PACLITAXEL [Suspect]
     Active Substance: PACLITAXEL
     Indication: ANAPLASTIC THYROID CANCER
     Dosage: CODE NOT BROKEN
     Route: 048
     Dates: start: 20161025, end: 20161121
  4. BLINDED PAZOPANIB [Suspect]
     Active Substance: PAZOPANIB
     Indication: ANAPLASTIC THYROID CANCER
     Dosage: CODE NOT BROKEN
     Route: 048
     Dates: start: 20161025, end: 20161121

REACTIONS (1)
  - Oral pain [Unknown]

NARRATIVE: CASE EVENT DATE: 20161127
